FAERS Safety Report 8390052 (Version 3)
Quarter: 2013Q1

REPORT INFORMATION
  Report Type: Spontaneous
  Country: US (occurrence: US)
  Receive Date: 20120203
  Receipt Date: 20130221
  Transmission Date: 20140127
  Serious: No
  Sender: FDA-Public Use
  Company Number: US-PFIZER INC-2012026735

PATIENT
  Age: 43 Year
  Sex: Male
  Weight: 118 kg

DRUGS (11)
  1. LIPITOR [Suspect]
     Indication: BLOOD CHOLESTEROL INCREASED
     Dosage: 10 MG,  DAILY
     Dates: start: 1996
  2. LIPITOR [Suspect]
     Dosage: UNK
  3. ATORVASTATIN CALCIUM [Suspect]
     Indication: BLOOD CHOLESTEROL INCREASED
     Dosage: 10 MG DAILY
     Route: 048
  4. ATORVASTATIN CALCIUM [Suspect]
     Indication: HYPERLIPIDAEMIA
  5. DICLOFENAC [Concomitant]
     Dosage: 75 MG, 2X/DAY
  6. OMEPRAZOLE [Concomitant]
     Dosage: 40 MG, 2X/DAY
  7. OMEGA-3 [Concomitant]
     Dosage: 1000 MG, DAILY
  8. VITAMIN D3 [Concomitant]
     Dosage: 400 IU, DAILY
  9. MULTIVITAMINS [Concomitant]
     Dosage: UNK, DAILY
  10. GABAPENTIN [Concomitant]
     Dosage: 300 MG, 5X/DAY
  11. AMLODIPINE [Concomitant]
     Dosage: 10 MG, DAILY

REACTIONS (6)
  - Liver disorder [Unknown]
  - Diarrhoea [Recovered/Resolved]
  - Gastric disorder [Unknown]
  - Abdominal pain upper [Recovered/Resolved]
  - Pain [Recovered/Resolved]
  - Dyspepsia [Unknown]
